FAERS Safety Report 8550778-0 (Version None)
Quarter: 2012Q3

REPORT INFORMATION
  Report Type: 
  Country: None (occurrence: None)
  Receive Date: 20120723
  Receipt Date: 20120723
  Transmission Date: 20120928
  Serious: Yes (Other)
  Sender: FDA-Public Use
  Company Number: None

PATIENT
  Sex: Male

DRUGS (10)
  1. XELODA [Suspect]
     Indication: COLON CANCER
  2. PROCHLORPERAZINE PRN [Concomitant]
  3. PYRIDOXINE HCL [Concomitant]
  4. FERROUS SULFATE TAB [Concomitant]
  5. PLAVIX [Concomitant]
  6. OXALIPLATIN [Suspect]
     Indication: COLON CANCER
  7. LOPERAMIDE PRN [Concomitant]
  8. IMDUR [Concomitant]
  9. METOPROLOL TARTRATE [Concomitant]
  10. ASPIRIN [Concomitant]

REACTIONS (1)
  - MUSCLE TIGHTNESS [None]
